FAERS Safety Report 7395633-7 (Version None)
Quarter: 2011Q2

REPORT INFORMATION
  Report Type: 
  Country: None (occurrence: None)
  Receive Date: 20110405
  Receipt Date: 20110328
  Transmission Date: 20111010
  Serious: Yes (Other)
  Sender: FDA-Public Use
  Company Number: CHPA2011FR04707

PATIENT
  Sex: Male

DRUGS (15)
  1. NEXIUM [Concomitant]
     Dosage: 20 MG, QD
     Route: 048
  2. SCOPOLAMINE [Suspect]
     Indication: SALIVARY HYPERSECRETION
     Dosage: 1 MG/72H, UNK
     Route: 062
     Dates: start: 20100126, end: 20101126
  3. DRUG THERAPY NOS [Concomitant]
     Dosage: UNK, UNK
  4. DOMPERIDONE [Concomitant]
     Dosage: 20 MG, TID
     Route: 048
     Dates: start: 20091208
  5. ORNITHINE OXOGLURATE [Concomitant]
     Dosage: 10 G, UNK
     Route: 065
  6. KARDEGIC [Concomitant]
     Dosage: 75 MG, UNK
     Route: 065
  7. DEROXAT [Concomitant]
     Dosage: 20 MG, UNK
     Route: 065
  8. OXYGEN THERAPY [Concomitant]
     Dosage: 5 LITER/MIN
     Route: 065
  9. NORMACOL [Concomitant]
     Indication: CONSTIPATION
     Dosage: 1 DF, QD
     Route: 054
     Dates: start: 20091208
  10. TRANSIPEG                               /FRA/ [Concomitant]
     Dosage: 5.9 G, UNK
     Route: 048
     Dates: start: 20090427
  11. EDUCTYL [Concomitant]
     Indication: CONSTIPATION
     Dosage: UNK, UNK
     Route: 054
  12. BACLOFEN [Concomitant]
     Dosage: 10 MG, UNK
     Route: 065
  13. DAFALGAN [Concomitant]
     Dosage: 500 MG, UNK
     Route: 065
  14. LEXOMIL [Concomitant]
     Route: 065
  15. ACTISKENAN [Concomitant]
     Dosage: 5 MG, QD
     Route: 048
     Dates: start: 20090902

REACTIONS (2)
  - APPLICATION SITE HYPERSENSITIVITY [None]
  - OFF LABEL USE [None]
